FAERS Safety Report 9189389 (Version 2)
Quarter: 2013Q2

REPORT INFORMATION
  Report Type: Spontaneous
  Country: US (occurrence: None)
  Receive Date: 20130322
  Receipt Date: 20130509
  Transmission Date: 20140414
  Serious: Yes (Hospitalization)
  Sender: FDA-Public Use
  Company Number: DEP_00888_2013

PATIENT
  Age: 79 Year
  Sex: Female
  Weight: 53.52 kg

DRUGS (8)
  1. GRALISE [Suspect]
     Indication: FIBROMYALGIA
     Dosage: 1800MG STARTER PACK AND BOTTLE; NIGHTLY ORAL
     Route: 048
     Dates: start: 20130118, end: 20130221
  2. GRALISE [Suspect]
     Indication: OFF LABEL USE
     Dosage: 1800MG STARTER PACK AND BOTTLE; NIGHTLY ORAL
     Route: 048
     Dates: start: 20130118, end: 20130221
  3. OMEPRAZOLE [Concomitant]
  4. PRAVASTATIN [Concomitant]
  5. AMBIEN [Concomitant]
  6. ATIVAN [Concomitant]
  7. TRAMADOL [Concomitant]
  8. MECLIZINE [Concomitant]

REACTIONS (5)
  - Delirium [None]
  - Amnesia [None]
  - Transient ischaemic attack [None]
  - Malaise [None]
  - Herpes zoster [None]
